FAERS Safety Report 7751279-X (Version None)
Quarter: 2011Q3

REPORT INFORMATION
  Report Type: 
  Country: None (occurrence: None)
  Receive Date: 20110914
  Receipt Date: 20110831
  Transmission Date: 20111222
  Serious: Yes (Hospitalization, Other)
  Sender: FDA-Public Use
  Company Number: JP-CEPHALON-2011004819

PATIENT
  Sex: Male
  Weight: 57 kg

DRUGS (6)
  1. CLOPIDOGREL SULFATE [Concomitant]
     Dates: start: 20110302
  2. TREANDA [Suspect]
     Indication: MANTLE CELL LYMPHOMA
     Route: 042
     Dates: start: 20110209
  3. AMLODIPINE BESYLATE [Concomitant]
  4. FLUCONAZOLE [Concomitant]
  5. TAMSULOSIN HYDROCHLORIDE [Concomitant]
     Dates: end: 20110305
  6. TEMISARTAN [Concomitant]

REACTIONS (8)
  - MALAISE [None]
  - BLOOD LACTATE DEHYDROGENASE INCREASED [None]
  - LYMPHOCYTE COUNT DECREASED [None]
  - ABDOMINAL DISCOMFORT [None]
  - C-REACTIVE PROTEIN INCREASED [None]
  - WHITE BLOOD CELL COUNT DECREASED [None]
  - HYPOGAMMAGLOBULINAEMIA [None]
  - INSOMNIA [None]
